FAERS Safety Report 21629124 (Version 1)
Quarter: 2022Q4

REPORT INFORMATION
  Report Type: Spontaneous
  Country: US (occurrence: US)
  Receive Date: 20221122
  Receipt Date: 20221122
  Transmission Date: 20230113
  Serious: No
  Sender: FDA-Public Use
  Company Number: US-SA-SAC20221118001860

PATIENT
  Sex: Female

DRUGS (2)
  1. FABRAZYME [Suspect]
     Active Substance: AGALSIDASE BETA
     Indication: Fabry^s disease
     Dosage: 35 MG , QOW
     Route: 042
     Dates: start: 20210507
  2. FABRAZYME [Suspect]
     Active Substance: AGALSIDASE BETA
     Dosage: 20 MG, QOW
     Dates: start: 20210507

REACTIONS (4)
  - Spinal disorder [Unknown]
  - Emotional disorder [Unknown]
  - Pain in extremity [Unknown]
  - Fabry^s disease [Unknown]
